FAERS Safety Report 9858838 (Version 2)
Quarter: 2014Q1

REPORT INFORMATION
  Report Type: Report from Study
  Country: NL (occurrence: NL)
  Receive Date: 20140131
  Receipt Date: 20140131
  Transmission Date: 20141002
  Serious: Yes (Death, Hospitalization)
  Sender: FDA-Public Use
  Company Number: NL-ABBVIE-11P-114-0696075-00

PATIENT
  Sex: Female
  Weight: 65 kg

DRUGS (5)
  1. HUMIRA [Suspect]
     Indication: CROHN^S DISEASE
     Route: 058
     Dates: start: 200909
  2. HUMIRA [Suspect]
  3. ACETYLSALICYLIC ACID [Concomitant]
     Indication: CARDIAC FAILURE
     Dosage: DISPERSABLE TABLET
     Route: 048
     Dates: start: 200905
  4. BUDESONIDE [Concomitant]
     Indication: CROHN^S DISEASE
     Dosage: TABLET FOR ENEMA
     Route: 054
  5. ALENDRONIC ACID [Concomitant]
     Indication: OSTEOPOROSIS
     Route: 048

REACTIONS (6)
  - Death [Fatal]
  - Investigation [Unknown]
  - Dyspnoea [Recovered/Resolved]
  - Cough [Recovered/Resolved]
  - Rash [Recovered/Resolved]
  - Respiratory tract infection [Not Recovered/Not Resolved]
